FAERS Safety Report 6644462-8 (Version None)
Quarter: 2010Q1

REPORT INFORMATION
  Report Type: 
  Country: None (occurrence: None)
  Receive Date: 20100319
  Receipt Date: 20100319
  Transmission Date: 20100710
  Serious: Yes (Hospitalization)
  Sender: FDA-Public Use
  Company Number: None

PATIENT
  Age: 76 Year
  Sex: Female
  Weight: 80.1 kg

DRUGS (12)
  1. ASPIRIN [Suspect]
     Indication: CEREBROVASCULAR ACCIDENT
     Dosage: 81 MG DAILY PO, RECENT
     Route: 048
  2. ULTRAM [Concomitant]
  3. TYLENOL-500 [Concomitant]
  4. ZOFRAN [Concomitant]
  5. PERCOCET [Concomitant]
  6. SYNTHROID [Concomitant]
  7. BENICAR [Concomitant]
  8. SIMVASTATIN [Concomitant]
  9. MYCELEX [Concomitant]
  10. PREVACID [Concomitant]
  11. COLACE [Concomitant]
  12. BENADRYL [Concomitant]

REACTIONS (1)
  - DUODENAL ULCER HAEMORRHAGE [None]
